FAERS Safety Report 10017335 (Version 1)
Quarter: 2014Q1

REPORT INFORMATION
  Report Type: Spontaneous
  Country: US (occurrence: None)
  Receive Date: 20140313
  Receipt Date: 20140313
  Transmission Date: 20141002
  Serious: Yes (Other)
  Sender: FDA-Public Use
  Company Number: None

PATIENT
  Age: 35 Year
  Sex: Male
  Weight: 74.84 kg

DRUGS (1)
  1. CELEXA [Suspect]
     Indication: ANXIETY
     Dosage: 1 PILL
     Route: 048
     Dates: start: 20140310, end: 20140311

REACTIONS (10)
  - Restlessness [None]
  - Retching [None]
  - Sleep disorder [None]
  - Paraesthesia [None]
  - Joint lock [None]
  - Feeling hot [None]
  - Heart rate increased [None]
  - Paranoia [None]
  - Sensory disturbance [None]
  - Muscular weakness [None]
